FAERS Safety Report 23063547 (Version 1)
Quarter: 2023Q4

REPORT INFORMATION
  Report Type: Report from Study
  Country: US (occurrence: None)
  Receive Date: 20231013
  Receipt Date: 20231013
  Transmission Date: 20240110
  Serious: Yes (Other)
  Sender: FDA-Public Use
  Company Number: 2023A228988

PATIENT
  Sex: Female

DRUGS (1)
  1. LYNPARZA [Suspect]
     Active Substance: OLAPARIB
     Indication: Fallopian tube cancer
     Route: 048

REACTIONS (7)
  - Renal failure [Unknown]
  - Blood magnesium decreased [Unknown]
  - Illness [Unknown]
  - Abdominal pain upper [Unknown]
  - Myalgia [Unknown]
  - Muscular weakness [Unknown]
  - Back pain [Unknown]
